FAERS Safety Report 7641125-7 (Version None)
Quarter: 2011Q3

REPORT INFORMATION
  Report Type: 
  Country: None (occurrence: None)
  Receive Date: 20110728
  Receipt Date: 20110715
  Transmission Date: 20111222
  Serious: Yes (Hospitalization, Other)
  Sender: FDA-Public Use
  Company Number: US-ELI_LILLY_AND_COMPANY-US201107004814

PATIENT
  Sex: Female

DRUGS (3)
  1. CYMBALTA [Suspect]
     Dosage: 60 MG, BID
  2. CYMBALTA [Suspect]
     Indication: ANXIETY
     Dosage: 120 MG, BID
  3. BACTRIM [Concomitant]

REACTIONS (5)
  - OVERDOSE [None]
  - PANCREATITIS [None]
  - SURGERY [None]
  - INTERVERTEBRAL DISC PROTRUSION [None]
  - ABDOMINAL DISCOMFORT [None]
